FAERS Safety Report 10616727 (Version 2)
Quarter: 2015Q1

REPORT INFORMATION
  Report Type: Spontaneous
  Country: SE (occurrence: SE)
  Receive Date: 20141201
  Receipt Date: 20150202
  Transmission Date: 20150720
  Serious: Yes (Other)
  Sender: FDA-Public Use
  Company Number: SE-ACTAVIS-2014-25473

PATIENT
  Sex: Male

DRUGS (1)
  1. ALPOXEN [Suspect]
     Active Substance: NAPROXEN
     Indication: RIB FRACTURE
     Dosage: UNK
     Route: 065
     Dates: end: 20140531

REACTIONS (4)
  - Bacterial infection [Unknown]
  - Eczema [Unknown]
  - Musculoskeletal pain [Unknown]
  - Hypersensitivity [Unknown]
